FAERS Safety Report 16154505 (Version 1)
Quarter: 2019Q2

REPORT INFORMATION
  Report Type: Spontaneous
  Country: RU (occurrence: RU)
  Receive Date: 20190403
  Receipt Date: 20190403
  Transmission Date: 20190711
  Serious: Yes (Hospitalization, Other)
  Sender: FDA-Public Use
  Company Number: RU-ROCHE-2290094

PATIENT
  Sex: Female

DRUGS (7)
  1. METHOTREXATE. [Concomitant]
     Active Substance: METHOTREXATE
     Indication: JUVENILE IDIOPATHIC ARTHRITIS
     Route: 065
     Dates: start: 201502, end: 201710
  2. ACTEMRA [Suspect]
     Active Substance: TOCILIZUMAB
     Route: 065
     Dates: start: 201705
  3. ACTEMRA [Suspect]
     Active Substance: TOCILIZUMAB
     Route: 065
     Dates: start: 201611
  4. ACTEMRA [Suspect]
     Active Substance: TOCILIZUMAB
     Route: 065
     Dates: start: 201710, end: 201802
  5. ACTEMRA [Suspect]
     Active Substance: TOCILIZUMAB
     Indication: JUVENILE IDIOPATHIC ARTHRITIS
     Route: 065
     Dates: start: 201502
  6. METHOTREXATE. [Concomitant]
     Active Substance: METHOTREXATE
     Route: 065
     Dates: start: 201802
  7. ACTEMRA [Suspect]
     Active Substance: TOCILIZUMAB
     Route: 065
     Dates: start: 201510

REACTIONS (6)
  - C-reactive protein increased [Recovered/Resolved]
  - Red blood cell sedimentation rate increased [Recovered/Resolved]
  - Arthritis [Recovering/Resolving]
  - Joint stiffness [Unknown]
  - Rash [Unknown]
  - Pyrexia [Unknown]

NARRATIVE: CASE EVENT DATE: 201502
